FAERS Safety Report 24290225 (Version 1)
Quarter: 2024Q3

REPORT INFORMATION
  Report Type: Spontaneous
  Country: US (occurrence: None)
  Receive Date: 20240905
  Receipt Date: 20240905
  Transmission Date: 20241016
  Serious: No
  Sender: Public
  Company Number: None

PATIENT
  Sex: Male

DRUGS (1)
  1. CAPECITABINE [Suspect]
     Active Substance: CAPECITABINE
     Indication: Hepatic cancer metastatic
     Dosage: OTHER FREQUENCY : 2 WEEKS ON, 1 WEEK OFF;?
     Dates: start: 202403, end: 202408

REACTIONS (3)
  - Therapy interrupted [None]
  - Fatigue [None]
  - Blood test abnormal [None]
